FAERS Safety Report 6512127-9 (Version None)
Quarter: 2009Q4

REPORT INFORMATION
  Report Type: 
  Country: None (occurrence: None)
  Receive Date: 20091222
  Receipt Date: 20090605
  Transmission Date: 20100525
  Serious: No
  Sender: FDA-Public Use
  Company Number: US-ASTRAZENECA-2009UW14539

PATIENT
  Age: 68 Year
  Sex: Female
  Weight: 97 kg

DRUGS (5)
  1. CRESTOR [Suspect]
     Route: 048
     Dates: start: 20090501
  2. CRESTOR [Suspect]
     Route: 048
     Dates: start: 20090501
  3. LOPRESSOR [Concomitant]
     Indication: HYPERTENSION
  4. AMLODIPINE [Concomitant]
     Indication: HYPERTENSION
  5. SPIRONOLACTONE/HYDROCHLOROTHIAZIDE [Concomitant]
     Indication: HYPERTENSION

REACTIONS (2)
  - PAIN IN EXTREMITY [None]
  - WEIGHT INCREASED [None]
